FAERS Safety Report 5115272-8 (Version None)
Quarter: 2006Q3

REPORT INFORMATION
  Report Type: 
  Country: None (occurrence: None)
  Receive Date: 20060926
  Receipt Date: 20060921
  Transmission Date: 20061208
  Serious: Yes (Death, Hospitalization, Other)
  Sender: FDA-Public Use
  Company Number: BR-GLAXOSMITHKLINE-A0621342A

PATIENT
  Age: 50 Year
  Sex: Male

DRUGS (7)
  1. ZIAGENAVIR [Suspect]
     Indication: ACQUIRED IMMUNODEFICIENCY SYNDROME
     Route: 065
  2. SULFADIAZINE [Concomitant]
  3. PYRIMETHAMINE TAB [Concomitant]
  4. FOLIC ACID [Concomitant]
  5. LAMIVUDINE [Concomitant]
  6. KALETRA [Concomitant]
  7. ZIDOVUDINE [Concomitant]

REACTIONS (3)
  - DEATH [None]
  - LARYNGEAL OEDEMA [None]
  - RESPIRATORY FAILURE [None]
